FAERS Safety Report 9915910 (Version 1)
Quarter: 2014Q1

REPORT INFORMATION
  Report Type: Spontaneous
  Country: US (occurrence: US)
  Receive Date: 20140221
  Receipt Date: 20140221
  Transmission Date: 20141002
  Serious: Yes (Hospitalization)
  Sender: FDA-Public Use
  Company Number: US-SA-2014SA019679

PATIENT
  Age: 88 Year
  Sex: Male

DRUGS (4)
  1. LANTUS [Suspect]
     Indication: TYPE 2 DIABETES MELLITUS
     Route: 058
  2. LANTUS SOLOSTAR [Suspect]
     Route: 058
  3. NOVOLOG [Suspect]
     Route: 065
  4. SOLOSTAR [Concomitant]

REACTIONS (2)
  - Cardiac failure congestive [Unknown]
  - Blood glucose increased [Unknown]
